FAERS Safety Report 6517241-X (Version None)
Quarter: 2009Q4

REPORT INFORMATION
  Report Type: 
  Country: None (occurrence: None)
  Receive Date: 20091217
  Receipt Date: 20091015
  Transmission Date: 20100525
  Serious: Yes (Hospitalization)
  Sender: FDA-Public Use
  Company Number: 89357

PATIENT
  Age: 54 Year
  Sex: Male

DRUGS (1)
  1. CISPLATIN [Suspect]
     Indication: GASTRIC CANCER STAGE IV
     Dosage: 80MG/KG (80 MG/KG, 1 IN 3 WEEKS) IV
     Route: 042
     Dates: start: 20081203

REACTIONS (3)
  - DEHYDRATION [None]
  - DIARRHOEA [None]
  - HYPOTENSION [None]
